FAERS Safety Report 7776849-4 (Version None)
Quarter: 2011Q3

REPORT INFORMATION
  Report Type: 
  Country: None (occurrence: None)
  Receive Date: 20110926
  Receipt Date: 20110913
  Transmission Date: 20111222
  Serious: Yes (Hospitalization)
  Sender: FDA-Public Use
  Company Number: CA-ELI_LILLY_AND_COMPANY-CA201109003911

PATIENT
  Age: 73 Year
  Sex: Female

DRUGS (11)
  1. CALCIUM CARBONATE [Concomitant]
  2. ASPIRIN [Concomitant]
  3. LIPITOR [Concomitant]
  4. METOPROLOL [Concomitant]
  5. FUROSEMIDE [Concomitant]
  6. POTASSIUM [Concomitant]
  7. OMEPRAZOLE [Concomitant]
  8. VITAMIN D [Concomitant]
  9. FORTEO [Suspect]
     Indication: OSTEOPOROSIS
     Dosage: 20 UG, QD
     Route: 058
     Dates: start: 20100414
  10. CITALOPRAM [Concomitant]
  11. LEVOTHYROXINE SODIUM [Concomitant]

REACTIONS (5)
  - FACIAL BONES FRACTURE [None]
  - INJURY [None]
  - LACERATION [None]
  - HUMERUS FRACTURE [None]
  - BLOOD COUNT ABNORMAL [None]
